FAERS Safety Report 7527832-5 (Version None)
Quarter: 2011Q2

REPORT INFORMATION
  Report Type: 
  Country: None (occurrence: None)
  Receive Date: 20110607
  Receipt Date: 20110531
  Transmission Date: 20111010
  Serious: Yes (Other)
  Sender: FDA-Public Use
  Company Number: US-PFIZER INC-2011118464

PATIENT
  Sex: Female
  Weight: 91 kg

DRUGS (11)
  1. METFORMIN [Concomitant]
     Indication: DIABETES MELLITUS
     Dosage: UNK
  2. CALCIUM [Concomitant]
     Dosage: UNK
  3. MULTI-VITAMINS [Concomitant]
     Dosage: UNK
  4. XALATAN [Suspect]
     Indication: OPEN ANGLE GLAUCOMA
     Dosage: 1GTT IN EACH EYE 1X/DAY
     Route: 047
  5. AVAPRO [Concomitant]
     Indication: PROPHYLAXIS
     Dosage: UNK
  6. AVAPRO [Concomitant]
     Indication: ROUTINE HEALTH MAINTENANCE
  7. VYTORIN [Concomitant]
     Dosage: UNK
  8. GLIMEPIRIDE [Concomitant]
     Indication: DIABETES MELLITUS
     Dosage: UNK
  9. VITAMIN D [Concomitant]
     Dosage: UNK
  10. JANUVIA [Concomitant]
     Indication: DIABETES MELLITUS
     Dosage: UNK
  11. ASPIRIN [Concomitant]
     Dosage: UNK

REACTIONS (5)
  - DRY EYE [None]
  - HYPERTENSION [None]
  - EYE IRRITATION [None]
  - LACRIMATION INCREASED [None]
  - OCULAR DISCOMFORT [None]
